FAERS Safety Report 18177124 (Version 1)
Quarter: 2020Q3

REPORT INFORMATION
  Report Type: Report from Study
  Country: CA (occurrence: CA)
  Receive Date: 20200821
  Receipt Date: 20200821
  Transmission Date: 20201103
  Serious: Yes (Other)
  Sender: FDA-Public Use
  Company Number: CA-CELLTRION INC.-2020CA024911

PATIENT

DRUGS (1)
  1. TRUXIMA [Suspect]
     Active Substance: RITUXIMAB-ABBS
     Indication: RHEUMATOID ARTHRITIS
     Dosage: 1000 MG Q2 WEEKS
     Route: 042
     Dates: start: 20200731

REACTIONS (6)
  - Blood pressure increased [Recovered/Resolved]
  - Visual impairment [Recovered/Resolved]
  - Blood pressure abnormal [Unknown]
  - Flushing [Unknown]
  - Pulse abnormal [Unknown]
  - Fatigue [Unknown]

NARRATIVE: CASE EVENT DATE: 20200803
